FAERS Safety Report 4698139-9 (Version None)
Quarter: 2005Q2

REPORT INFORMATION
  Report Type: 
  Country: None (occurrence: None)
  Receive Date: 20050623
  Receipt Date: 20050610
  Transmission Date: 20051028
  Serious: Yes (Other)
  Sender: FDA-Public Use
  Company Number: PHHO2005BE09310

PATIENT
  Age: 62 Year
  Sex: Female

DRUGS (5)
  1. DIOVAN HCT [Suspect]
     Indication: HYPERTENSION
     Dosage: 160MG
     Route: 048
     Dates: start: 20050329, end: 20050523
  2. EMCONCOR [Concomitant]
  3. SERENASE [Concomitant]
  4. CARDIOASPIRIN [Concomitant]
  5. ELTHYRONE [Concomitant]

REACTIONS (6)
  - DEPRESSED MOOD [None]
  - EYE PAIN [None]
  - HEADACHE [None]
  - NAUSEA [None]
  - PRURITUS [None]
  - SOMNOLENCE [None]
